FAERS Safety Report 4818245-5 (Version None)
Quarter: 2005Q3

REPORT INFORMATION
  Report Type: 
  Country: None (occurrence: None)
  Receive Date: 20050929
  Receipt Date: 20050621
  Transmission Date: 20060218
  Serious: No
  Sender: FDA-Public Use
  Company Number: 05P-163-0303681-00

PATIENT
  Age: 34 Year
  Sex: Female
  Weight: 93 kg

DRUGS (4)
  1. HUMIRA [Suspect]
     Indication: RHEUMATOID ARTHRITIS
     Dosage: 40 MG, 1 IN 2 WK, SUBCUTANEOUS
     Route: 058
     Dates: start: 20030601
  2. METHOTREXATE [Concomitant]
  3. MULTI-VITAMINS [Concomitant]
  4. MEDROXYPROGESTERONE ACETATE [Concomitant]

REACTIONS (1)
  - DRUG INEFFECTIVE [None]
